FAERS Safety Report 14646564 (Version 1)
Quarter: 2018Q1

REPORT INFORMATION
  Report Type: Spontaneous
  Country: US (occurrence: US)
  Receive Date: 20180315
  Receipt Date: 20180315
  Transmission Date: 20180509
  Serious: Yes (Other)
  Sender: FDA-Public Use
  Company Number: None

PATIENT
  Age: 42 Year
  Sex: Male

DRUGS (17)
  1. OMEPRAZOLE. [Concomitant]
     Active Substance: OMEPRAZOLE
  2. TERAZOSIN [Concomitant]
     Active Substance: TERAZOSIN\TERAZOSIN HYDROCHLORIDE
  3. TRUE METRIX TES GLUCOSE [Concomitant]
  4. CLONIDINE. [Concomitant]
     Active Substance: CLONIDINE
  5. COSENTYX [Suspect]
     Active Substance: SECUKINUMAB
     Indication: RHEUMATOID ARTHRITIS
     Dosage: 1 SYRINGE EVERY MONTH SUBCUTANEOUS
     Route: 058
     Dates: start: 20160826
  6. LOSARTAN POT [Concomitant]
     Active Substance: LOSARTAN POTASSIUM
  7. POT CL MICRO [Concomitant]
  8. DULOXETINE. [Concomitant]
     Active Substance: DULOXETINE
  9. HYDROCO/APAP [Concomitant]
     Active Substance: ACETAMINOPHEN\HYDROCODONE
  10. POT CHLORIDE [Concomitant]
     Active Substance: POTASSIUM CHLORIDE
  11. ALPRAZOLAM. [Concomitant]
     Active Substance: ALPRAZOLAM
  12. LEVETIRACETA [Concomitant]
  13. METOPROLOL TARTRATE. [Concomitant]
     Active Substance: METOPROLOL TARTRATE
  14. SERTRALINE [Concomitant]
     Active Substance: SERTRALINE HYDROCHLORIDE
  15. XARELTO [Concomitant]
     Active Substance: RIVAROXABAN
  16. PARAVASTATIN [Concomitant]
  17. METFORMIN [Concomitant]
     Active Substance: METFORMIN HYDROCHLORIDE

REACTIONS (1)
  - Hospitalisation [None]
